FAERS Safety Report 5265741-5 (Version None)
Quarter: 2007Q1

REPORT INFORMATION
  Report Type: 
  Country: None (occurrence: None)
  Receive Date: 20061213
  Receipt Date: 20030228
  Transmission Date: 20070707
  Serious: No
  Sender: FDA-Public Use
  Company Number: 2003UW02547

PATIENT
  Age: 80 Year
  Sex: Female

DRUGS (3)
  1. TAMOXIFEN CITRATE [Suspect]
     Indication: BREAST CANCER
     Dosage: 20 MG PO
     Route: 048
     Dates: start: 20020401
  2. ZOCOR [Concomitant]
  3. FOSAMAX [Concomitant]

REACTIONS (2)
  - THROMBOCYTOPENIA [None]
  - VAGINAL DISCHARGE [None]
